FAERS Safety Report 6337931-1 (Version None)
Quarter: 2009Q3

REPORT INFORMATION
  Report Type: 
  Country: None (occurrence: None)
  Receive Date: 20090902
  Receipt Date: 20090821
  Transmission Date: 20100115
  Serious: Yes (Hospitalization)
  Sender: FDA-Public Use
  Company Number: FR-JNJFOC-20090900330

PATIENT
  Age: 54 Year
  Sex: Male

DRUGS (10)
  1. TRAMADOL HCL [Suspect]
     Indication: BACK PAIN
     Route: 048
     Dates: start: 20090720, end: 20090803
  2. IXPRIM [Suspect]
     Indication: BACK PAIN
     Route: 048
     Dates: start: 20090720, end: 20090729
  3. RIFADIN [Concomitant]
     Route: 065
  4. OFLOCET [Concomitant]
     Route: 065
  5. EFFEXOR [Concomitant]
     Route: 065
  6. NOVORAPID [Concomitant]
     Route: 065
  7. LANTUS [Concomitant]
     Route: 065
  8. SERESTA [Concomitant]
     Route: 065
  9. AMLODIPINE [Concomitant]
     Route: 065
  10. PROPRANOLOL [Concomitant]
     Route: 065

REACTIONS (2)
  - LEUKOPENIA [None]
  - NEUTROPENIA [None]
